FAERS Safety Report 13180358 (Version 3)
Quarter: 2017Q4

REPORT INFORMATION
  Report Type: Report from Study
  Country: US (occurrence: US)
  Receive Date: 20170202
  Receipt Date: 20171016
  Transmission Date: 20180320
  Serious: Yes (Hospitalization, Other)
  Sender: FDA-Public Use
  Company Number: US-JNJFOC-20161218296

PATIENT
  Age: 79 Year
  Sex: Male

DRUGS (14)
  1. XARELTO [Suspect]
     Active Substance: RIVAROXABAN
     Indication: ATRIAL FIBRILLATION
     Route: 048
     Dates: start: 201703
  2. SINEMET [Concomitant]
     Active Substance: CARBIDOPA\LEVODOPA
  3. LOSARTAN. [Concomitant]
     Active Substance: LOSARTAN
  4. IMBRUVICA [Suspect]
     Active Substance: IBRUTINIB
     Indication: WALDENSTROM^S MACROGLOBULINAEMIA
     Route: 048
     Dates: start: 20170516, end: 20170617
  5. AMANTADINE. [Suspect]
     Active Substance: AMANTADINE HYDROCHLORIDE
     Indication: PRODUCT USED FOR UNKNOWN INDICATION
     Route: 065
  6. IMBRUVICA [Suspect]
     Active Substance: IBRUTINIB
     Indication: NON-HODGKIN^S LYMPHOMA
     Route: 048
     Dates: start: 20160615
  7. SELEGILINE [Concomitant]
     Active Substance: SELEGILINE
  8. ATIVAN [Concomitant]
     Active Substance: LORAZEPAM
  9. IMBRUVICA [Suspect]
     Active Substance: IBRUTINIB
     Indication: WALDENSTROM^S MACROGLOBULINAEMIA
     Route: 048
     Dates: start: 20160608
  10. IMBRUVICA [Suspect]
     Active Substance: IBRUTINIB
     Indication: NON-HODGKIN^S LYMPHOMA
     Route: 048
     Dates: start: 20160608
  11. IMBRUVICA [Suspect]
     Active Substance: IBRUTINIB
     Indication: NON-HODGKIN^S LYMPHOMA
     Route: 048
     Dates: start: 20170516, end: 20170617
  12. IMBRUVICA [Suspect]
     Active Substance: IBRUTINIB
     Indication: NON-HODGKIN^S LYMPHOMA
     Route: 048
     Dates: start: 201605
  13. IMBRUVICA [Suspect]
     Active Substance: IBRUTINIB
     Indication: WALDENSTROM^S MACROGLOBULINAEMIA
     Route: 048
     Dates: start: 201605
  14. IMBRUVICA [Suspect]
     Active Substance: IBRUTINIB
     Indication: WALDENSTROM^S MACROGLOBULINAEMIA
     Route: 048
     Dates: start: 20160615

REACTIONS (28)
  - Anaemia [Unknown]
  - Contusion [Unknown]
  - Balance disorder [Unknown]
  - Vision blurred [Unknown]
  - Back pain [Unknown]
  - Oedema peripheral [Unknown]
  - Laceration [Recovering/Resolving]
  - Thrombocytopenia [Recovered/Resolved]
  - Bradykinesia [Unknown]
  - Dyspnoea exertional [Unknown]
  - Hallucination [Not Recovered/Not Resolved]
  - Neck pain [Unknown]
  - Arthralgia [Unknown]
  - Macular degeneration [Unknown]
  - Fall [Unknown]
  - Muscular weakness [Unknown]
  - Haematoma [Unknown]
  - Rash [Recovered/Resolved]
  - Asthenia [Unknown]
  - Musculoskeletal pain [Unknown]
  - Wound haematoma [Recovered/Resolved]
  - Fatigue [Unknown]
  - Myalgia [Unknown]
  - Renal neoplasm [Unknown]
  - Resting tremor [Unknown]
  - Flank pain [Recovering/Resolving]
  - Constipation [Recovering/Resolving]
  - Musculoskeletal stiffness [Unknown]

NARRATIVE: CASE EVENT DATE: 2016
